FAERS Safety Report 23418832 (Version 3)
Quarter: 2024Q1

REPORT INFORMATION
  Report Type: Spontaneous
  Country: US (occurrence: US)
  Receive Date: 20240118
  Receipt Date: 20240221
  Transmission Date: 20240409
  Serious: Yes (Hospitalization, Other)
  Sender: FDA-Public Use
  Company Number: US-SUNOVION-2024SUN000030

PATIENT

DRUGS (3)
  1. APTIOM [Suspect]
     Active Substance: ESLICARBAZEPINE ACETATE
     Indication: Generalised tonic-clonic seizure
     Dosage: 1200 MG (800MG AND A 1/2 OF AND 800MG)
     Route: 048
  2. APTIOM [Suspect]
     Active Substance: ESLICARBAZEPINE ACETATE
     Dosage: 400 MG, QD (HALF OF A TABLET A DAY)
     Route: 048
  3. APTIOM [Suspect]
     Active Substance: ESLICARBAZEPINE ACETATE
     Dosage: 800 MG
     Route: 048

REACTIONS (6)
  - Seizure [Unknown]
  - Anaemia [Unknown]
  - Cardiac disorder [Unknown]
  - Off label use [Unknown]
  - Treatment noncompliance [Unknown]
  - Therapy interrupted [Unknown]
